FAERS Safety Report 8778297 (Version 1)
Quarter: 2012Q4

REPORT INFORMATION
  Report Type: 
  Country: US (occurrence: US)
  Receive Date: 20120912
  Receipt Date: 20120912
  Transmission Date: 20130627
  Serious: No
  Sender: FDA-Public Use
  Company Number: US-B.I. PHARMACEUTICALS,INC./RIDGEFIELD-2012-BP-21563BP

PATIENT
  Sex: Male

DRUGS (3)
  1. ZANTAC 150 (RANITIDINE HYDROCHLORIDE) [Suspect]
     Indication: DYSPEPSIA
     Dosage: 300 mg
     Route: 048
     Dates: start: 201203, end: 201209
  2. ZANTAC 150 (RANITIDINE HYDROCHLORIDE) [Suspect]
     Indication: DYSPEPSIA
  3. DIOVAN [Concomitant]
     Indication: HYPERTENSION

REACTIONS (2)
  - Dyspnoea [Recovered/Resolved]
  - Bronchial disorder [Recovered/Resolved]
